FAERS Safety Report 5267593-6 (Version None)
Quarter: 2007Q1

REPORT INFORMATION
  Report Type: 
  Country: None (occurrence: None)
  Receive Date: 20070316
  Receipt Date: 20070307
  Transmission Date: 20070707
  Serious: Yes (Hospitalization, Other)
  Sender: FDA-Public Use
  Company Number: US-ABBOTT-07P-163-0361856-00

PATIENT
  Sex: Female
  Weight: 54.48 kg

DRUGS (12)
  1. HUMIRA [Suspect]
     Indication: RHEUMATOID ARTHRITIS
     Route: 058
     Dates: start: 20050301, end: 20070109
  2. HUMIRA [Suspect]
     Route: 058
     Dates: start: 20070309
  3. GLUCOSAMINE [Concomitant]
     Indication: RHEUMATOID ARTHRITIS
     Route: 048
     Dates: start: 19920101
  4. CARVEDILOL [Concomitant]
     Indication: ANGIOPATHY
     Route: 048
     Dates: start: 20060101
  5. SPIRONOLACTONE [Concomitant]
     Indication: DIURETIC THERAPY
     Route: 048
     Dates: start: 20060101
  6. ACETYLSALICYLIC ACID SRT [Concomitant]
     Indication: CARDIOVASCULAR EVENT PROPHYLAXIS
     Route: 048
     Dates: start: 20040101
  7. MEDROL [Concomitant]
     Indication: RHEUMATOID ARTHRITIS
     Route: 048
     Dates: start: 20070216, end: 20070216
  8. MEDROL [Concomitant]
     Route: 048
     Dates: start: 20070217, end: 20070217
  9. MEDROL [Concomitant]
     Route: 048
     Dates: start: 20070218, end: 20070218
  10. MEDROL [Concomitant]
     Route: 048
     Dates: start: 20070219, end: 20070219
  11. MEDROL [Concomitant]
     Route: 048
     Dates: start: 20070220, end: 20070220
  12. MEDROL [Concomitant]
     Route: 048
     Dates: start: 20070221, end: 20070221

REACTIONS (2)
  - HIP ARTHROPLASTY [None]
  - INJECTION SITE IRRITATION [None]
